FAERS Safety Report 16451058 (Version 3)
Quarter: 2019Q3

REPORT INFORMATION
  Report Type: Spontaneous
  Country: US (occurrence: US)
  Receive Date: 20190619
  Receipt Date: 20190828
  Transmission Date: 20191004
  Serious: No
  Sender: FDA-Public Use
  Company Number: US-PFIZER INC-2019256458

PATIENT
  Age: 71 Year
  Sex: Female
  Weight: 50 kg

DRUGS (9)
  1. FLECTOR [Suspect]
     Active Substance: DICLOFENAC EPOLAMINE
     Indication: BACK PAIN
     Dosage: 1 DF, UNK (1 PATCH APPLIED ONTO THE SKIN DIRECTLY)
     Route: 062
     Dates: start: 20190603, end: 20190604
  2. FLECTOR [Suspect]
     Active Substance: DICLOFENAC EPOLAMINE
     Indication: MYALGIA
     Dosage: 1 DF, ALTERNATE DAY  (1 PATCH APPLIED ONTO THE SKIN DIRECTLY)
     Route: 062
     Dates: start: 20190608, end: 2019
  3. FLECTOR [Suspect]
     Active Substance: DICLOFENAC EPOLAMINE
     Indication: MUSCLE STRAIN
  4. VITAMIN D [Concomitant]
     Active Substance: VITAMIN D NOS
     Dosage: UNK
  5. PROBIOTICA [Concomitant]
     Active Substance: PROBIOTICS NOS
     Dosage: UNK
  6. FLECTOR [Suspect]
     Active Substance: DICLOFENAC EPOLAMINE
     Indication: SCIATICA
     Dosage: UNK UNK, 1X/DAY  (1.3 % PATCH 1 A DAY)
     Dates: start: 201904, end: 2019
  7. FLECTOR [Suspect]
     Active Substance: DICLOFENAC EPOLAMINE
     Indication: MUSCLE RUPTURE
  8. CORTISONE [Concomitant]
     Active Substance: CORTISONE
     Dosage: UNK
  9. CALCIUM [Concomitant]
     Active Substance: CALCIUM
     Dosage: UNK

REACTIONS (3)
  - Application site rash [Recovered/Resolved]
  - Blister [Unknown]
  - Application site inflammation [Recovered/Resolved]

NARRATIVE: CASE EVENT DATE: 2019
